FAERS Safety Report 4603121-3 (Version None)
Quarter: 2005Q1

REPORT INFORMATION
  Report Type: 
  Country: None (occurrence: None)
  Receive Date: 20050307
  Receipt Date: 20050301
  Transmission Date: 20050727
  Serious: Yes (Death, Life-Threatening, Hospitalization)
  Sender: FDA-Public Use
  Company Number: A001-319-788

PATIENT
  Age: 85 Year
  Sex: Male
  Weight: 86 kg

DRUGS (18)
  1. E2020    (DONEPEZIL HYDROCHLORIDE) [Suspect]
     Indication: VASCULAR DEMENTIA
     Dosage: 5 MG, 1 IN 1 D, ORAL
     Route: 048
     Dates: start: 20040928, end: 20050201
  2. E2020 (DONEPEZIL HYDROCHLORIDE) [Suspect]
  3. CALCIUM (CALCIUM) [Concomitant]
  4. MULTIVITAMIN [Concomitant]
  5. VITAMIN D [Concomitant]
  6. MAGNESIUM (MAGNESIUM) [Concomitant]
  7. ATORVASTATIN CALCIUM [Concomitant]
  8. NITROLINGUAL [Concomitant]
  9. ACETYLSALICYLIC ACID SRT [Concomitant]
  10. DICLOFENAC GEL (DICLOFENAC SODIUM) [Concomitant]
  11. SOTALOL HCL [Concomitant]
  12. OMEPRAZOLE [Concomitant]
  13. NOVO-SEMIDE (FUROSEMIDE) [Concomitant]
  14. GEN-CITALOPRAM (CITALOPRAM) [Concomitant]
  15. INHIBACE [Concomitant]
  16. CLOPIDOGREL BISULPHATE (CLOPIDOGREL SULFATE) [Concomitant]
  17. TAMSULOSIN (TAMSULOSIN) [Concomitant]
  18. FLOTROPIUM BROMIDE MONOHYDRATE (FLUTROPIUM BROMIDE) [Concomitant]

REACTIONS (4)
  - CARDIO-RESPIRATORY ARREST [None]
  - COMA [None]
  - FALL [None]
  - FEMUR FRACTURE [None]
